FAERS Safety Report 15023199 (Version 1)
Quarter: 2018Q2

REPORT INFORMATION
  Report Type: Spontaneous
  Country: US (occurrence: US)
  Receive Date: 20180618
  Receipt Date: 20180618
  Transmission Date: 20180711
  Serious: Yes (Hospitalization)
  Sender: FDA-Public Use
  Company Number: US-PFIZER INC-2018242224

PATIENT
  Age: 21 Year
  Sex: Male

DRUGS (7)
  1. DOXORUBICIN HCL [Suspect]
     Active Substance: DOXORUBICIN HYDROCHLORIDE
     Dosage: 37.5 MG/M2, CYCLIC (DAYS 1-2)
     Dates: start: 20150409
  2. DOXORUBICIN HCL [Suspect]
     Active Substance: DOXORUBICIN HYDROCHLORIDE
     Dosage: 37.5 MG/M2, CYCLIC (DAYS 1-2)
     Dates: start: 20150504
  3. DOXORUBICIN HCL [Suspect]
     Active Substance: DOXORUBICIN HYDROCHLORIDE
     Dosage: 37.5 MG/M2, CYCLIC (DAYS 1-2)
     Dates: start: 20150319
  4. DOXORUBICIN HCL [Suspect]
     Active Substance: DOXORUBICIN HYDROCHLORIDE
     Dosage: 37.5 MG/M2, CYCLIC (DAYS 1-2)
     Dates: start: 20150618
  5. DOXORUBICIN HCL [Suspect]
     Active Substance: DOXORUBICIN HYDROCHLORIDE
     Dosage: 37.5 MG/M2, CYCLIC (DAYS 1-2)
     Dates: start: 20150226
  6. IFOSFAMIDE. [Suspect]
     Active Substance: IFOSFAMIDE
     Dosage: UNK
  7. DOXORUBICIN HCL [Suspect]
     Active Substance: DOXORUBICIN HYDROCHLORIDE
     Dosage: 37.5 MG/M2, CYCLIC (DAYS 1-2)
     Dates: start: 20150525

REACTIONS (3)
  - Proctitis [Unknown]
  - Vomiting [Recovering/Resolving]
  - Pancytopenia [Unknown]

NARRATIVE: CASE EVENT DATE: 20150602
